FAERS Safety Report 12945632 (Version 4)
Quarter: 2017Q4

REPORT INFORMATION
  Report Type: Report from Study
  Country: DE (occurrence: DE)
  Receive Date: 20161115
  Receipt Date: 20171201
  Transmission Date: 20180320
  Serious: Yes (Other)
  Sender: FDA-Public Use
  Company Number: DE-GILEAD-2016-0242167

PATIENT
  Age: 60 Year
  Sex: Female
  Weight: 73 kg

DRUGS (1)
  1. LEDIPASVIR/SOFOSBUVIR [Suspect]
     Active Substance: LEDIPASVIR\SOFOSBUVIR
     Indication: CHRONIC HEPATITIS C
     Dosage: 90 MG, UNK
     Route: 048
     Dates: start: 20150613, end: 20151127

REACTIONS (9)
  - Insomnia [Not Recovered/Not Resolved]
  - Headache [Not Recovered/Not Resolved]
  - Diarrhoea [Recovered/Resolved]
  - Disturbance in attention [Not Recovered/Not Resolved]
  - Mood swings [Recovered/Resolved]
  - Drug dependence [Recovered/Resolved]
  - Abdominal distension [Not Recovered/Not Resolved]
  - Fatigue [Not Recovered/Not Resolved]
  - Nausea [Recovered/Resolved]

NARRATIVE: CASE EVENT DATE: 20150623
